FAERS Safety Report 15609524 (Version 1)
Quarter: 2018Q4

REPORT INFORMATION
  Report Type: Spontaneous
  Country: AU (occurrence: AU)
  Receive Date: 20181112
  Receipt Date: 20181112
  Transmission Date: 20190205
  Serious: Yes (Hospitalization, Other)
  Sender: FDA-Public Use
  Company Number: AU-ABBVIE-18K-008-2547904-00

PATIENT
  Age: 51 Year
  Sex: Male
  Weight: 107 kg

DRUGS (2)
  1. HUMIRA [Suspect]
     Active Substance: ADALIMUMAB
     Indication: PSORIASIS
     Route: 058
     Dates: start: 20101013, end: 201804
  2. PERINDOPRIL [Concomitant]
     Active Substance: PERINDOPRIL
     Indication: HYPERTENSION
     Route: 048

REACTIONS (4)
  - Paratracheal lymphadenopathy [Unknown]
  - Sarcoidosis [Recovered/Resolved]
  - Hilar lymphadenopathy [Unknown]
  - Spinal fusion surgery [Recovered/Resolved]

NARRATIVE: CASE EVENT DATE: 201805
